FAERS Safety Report 4639351-4 (Version None)
Quarter: 2005Q2

REPORT INFORMATION
  Report Type: 
  Country: None (occurrence: None)
  Receive Date: 20050418
  Receipt Date: 20050411
  Transmission Date: 20051028
  Serious: Yes (Hospitalization)
  Sender: FDA-Public Use
  Company Number: 05P-163-0296975-00

PATIENT
  Age: 80 Year
  Sex: Female

DRUGS (6)
  1. HUMIRA [Suspect]
     Indication: RHEUMATOID ARTHRITIS
     Dosage: 40 MG, 2 IN 1 WK, SUBCUTANEOUS
     Route: 058
     Dates: start: 20050101
  2. METHYLPREDNISOLONE [Concomitant]
  3. OXYBUTYNIN HYDROCHLORIDE [Concomitant]
  4. DIOVAN [Concomitant]
  5. METHOTREXATE [Concomitant]
  6. FOLIC ACID [Concomitant]

REACTIONS (2)
  - BRONCHITIS [None]
  - CHILLS [None]
